FAERS Safety Report 8901829 (Version 1)
Quarter: 2012Q4

REPORT INFORMATION
  Report Type: Spontaneous
  Country: US (occurrence: None)
  Receive Date: 20121106
  Receipt Date: 20121106
  Transmission Date: 20130627
  Serious: Yes (Other)
  Sender: FDA-Public Use
  Company Number: 2012P1061325

PATIENT
  Age: 95 Year
  Sex: Female

DRUGS (2)
  1. MORPHINE [Suspect]
  2. UNKNOWN DRUG [Suspect]

REACTIONS (3)
  - Carpal tunnel syndrome [None]
  - Hepatitis C [None]
  - Aphagia [None]
